FAERS Safety Report 6360742-8 (Version None)
Quarter: 2009Q3

REPORT INFORMATION
  Report Type: 
  Country: None (occurrence: None)
  Receive Date: 20090918
  Receipt Date: 20090914
  Transmission Date: 20100115
  Serious: Yes (Life-Threatening, Hospitalization)
  Sender: FDA-Public Use
  Company Number: US-TEVA-209346USA

PATIENT
  Sex: Female
  Weight: 72.64 kg

DRUGS (2)
  1. ESTRACE, ESTRADIOL, TABLETS, 0.5MG,1MG, 1.5MG, 2MG [Suspect]
     Indication: HOT FLUSH
     Route: 048
     Dates: start: 20090828, end: 20090831
  2. ESTRACE, ESTRADIOL, TABLETS, 0.5MG,1MG, 1.5MG, 2MG [Suspect]
     Indication: MENOPAUSE

REACTIONS (3)
  - DUODENAL ULCER [None]
  - GASTRIC ULCER [None]
  - GASTROINTESTINAL NECROSIS [None]
